FAERS Safety Report 16160528 (Version 1)
Quarter: 2019Q2

REPORT INFORMATION
  Report Type: Spontaneous
  Country: IT (occurrence: IT)
  Receive Date: 20190405
  Receipt Date: 20190405
  Transmission Date: 20190711
  Serious: Yes (Death, Other)
  Sender: FDA-Public Use
  Company Number: IT-SUN PHARMACEUTICAL INDUSTRIES LTD-2019R1-204274

PATIENT
  Age: 72 Year
  Sex: Male

DRUGS (4)
  1. VINORELBINE [Suspect]
     Active Substance: VINORELBINE\VINORELBINE TARTRATE
     Indication: CHEMOTHERAPY
     Dosage: FOUR CYCLES
     Route: 065
     Dates: start: 201406
  2. CARBOPLATIN. [Suspect]
     Active Substance: CARBOPLATIN
     Indication: CHEMOTHERAPY
     Dosage: FOUR CYCLES
     Route: 065
     Dates: start: 201406
  3. NIVOLUMAB [Suspect]
     Active Substance: NIVOLUMAB
     Indication: CHEMOTHERAPY
     Dosage: UNK
     Route: 065
  4. TAXOTERE [Suspect]
     Active Substance: DOCETAXEL
     Indication: CHEMOTHERAPY
     Dosage: UNK
     Route: 065

REACTIONS (4)
  - Pulmonary toxicity [Fatal]
  - Pneumonitis [Unknown]
  - Traumatic lung injury [Fatal]
  - Interstitial lung disease [Fatal]
